FAERS Safety Report 11647809 (Version 1)
Quarter: 2015Q4

REPORT INFORMATION
  Report Type: Spontaneous
  Country: US (occurrence: None)
  Receive Date: 20151020
  Receipt Date: 20151020
  Transmission Date: 20160304
  Serious: Yes (Disabling, Other)
  Sender: FDA-Public Use
  Company Number: None

PATIENT
  Age: 73 Year
  Sex: Male
  Weight: 83.01 kg

DRUGS (7)
  1. OMEPRAZOLE. [Suspect]
     Active Substance: OMEPRAZOLE
     Indication: GASTROOESOPHAGEAL REFLUX DISEASE
     Dosage: 1
     Route: 048
  2. FLECAINIDE [Concomitant]
     Active Substance: FLECAINIDE
  3. MAGNESIUM [Concomitant]
     Active Substance: MAGNESIUM
  4. ZOLPIDEM [Concomitant]
     Active Substance: ZOLPIDEM\ZOLPIDEM TARTRATE
  5. D3 [Concomitant]
     Active Substance: 25-HYDROXYCHOLECALCIFEROL, 5-TRANS-
  6. POTASSIUM [Concomitant]
     Active Substance: POTASSIUM
  7. ALPRAZOLAM SELDOM [Concomitant]

REACTIONS (5)
  - Pain [None]
  - Insomnia [None]
  - Gastric polyps [None]
  - Arrhythmia [None]
  - Headache [None]

NARRATIVE: CASE EVENT DATE: 20150826
